FAERS Safety Report 4354961-X (Version None)
Quarter: 2004Q2

REPORT INFORMATION
  Report Type: 
  Country: None (occurrence: None)
  Receive Date: 20040504
  Receipt Date: 20040422
  Transmission Date: 20050107
  Serious: Yes (Hospitalization, Other)
  Sender: FDA-Public Use
  Company Number: HQWYE569622APR04

PATIENT
  Age: 78 Year
  Sex: Female

DRUGS (4)
  1. INIPOMP (PANTOPRAZOLE, TABLET, DELAYED RELEASE) [Suspect]
     Dosage: ORAL
     Route: 048
     Dates: start: 20040206, end: 20040227
  2. ALDACTAZIDE [Suspect]
     Dosage: 40 MG  ORAL
     Route: 048
     Dates: end: 20040227
  3. ZOLOFT [Suspect]
     Dosage: ORAL
     Route: 048
     Dates: start: 20040218, end: 20040227
  4. COVERSYL (PERINDOPRIL) [Concomitant]

REACTIONS (4)
  - DEPRESSED LEVEL OF CONSCIOUSNESS [None]
  - FALL [None]
  - HYPONATRAEMIA [None]
  - SOMNOLENCE [None]
